FAERS Safety Report 22044760 (Version 1)
Quarter: 2023Q1

REPORT INFORMATION
  Report Type: Spontaneous
  Country: PL (occurrence: PL)
  Receive Date: 20230228
  Receipt Date: 20230228
  Transmission Date: 20230418
  Serious: Yes (Life-Threatening, Hospitalization, Other)
  Sender: FDA-Public Use
  Company Number: PL-BRISTOL-MYERS SQUIBB COMPANY-2023-028007

PATIENT
  Age: 67 Year
  Sex: Male

DRUGS (1)
  1. FEDRATINIB [Suspect]
     Active Substance: FEDRATINIB
     Indication: Product used for unknown indication
     Dates: start: 20230210

REACTIONS (2)
  - Inflammation [Unknown]
  - Renal impairment [Unknown]

NARRATIVE: CASE EVENT DATE: 20230220
